FAERS Safety Report 18753825 (Version 5)
Quarter: 2021Q2

REPORT INFORMATION
  Report Type: Report from Study
  Country: None (occurrence: US)
  Receive Date: 20210119
  Receipt Date: 20210602
  Transmission Date: 20210717
  Serious: Yes (Congenital Anomaly, Other)
  Sender: FDA-Public Use
  Company Number: FR-ABBVIE-21K-056-3733476-00

PATIENT
  Sex: Male
  Weight: 2.76 kg

DRUGS (4)
  1. LAMIVUDINE. [Suspect]
     Active Substance: LAMIVUDINE
     Indication: MATERNAL EXPOSURE TIMING UNSPECIFIED
     Route: 064
     Dates: start: 20191205
  2. PREZISTA [Suspect]
     Active Substance: DARUNAVIR ETHANOLATE
     Indication: MATERNAL EXPOSURE TIMING UNSPECIFIED
     Route: 064
     Dates: start: 20191205
  3. NORVIR [Suspect]
     Active Substance: RITONAVIR
     Indication: MATERNAL EXPOSURE TIMING UNSPECIFIED
     Route: 064
     Dates: start: 20191205
  4. EDURANT [Suspect]
     Active Substance: RILPIVIRINE HYDROCHLORIDE
     Indication: MATERNAL EXPOSURE TIMING UNSPECIFIED
     Route: 064
     Dates: start: 20191205

REACTIONS (3)
  - Pyelocaliectasis [Not Recovered/Not Resolved]
  - Congenital hydronephrosis [Unknown]
  - Foetal exposure during pregnancy [Unknown]
